FAERS Safety Report 11701996 (Version 2)
Quarter: 2015Q4

REPORT INFORMATION
  Report Type: Spontaneous
  Country: FR (occurrence: FR)
  Receive Date: 20151105
  Receipt Date: 20151112
  Transmission Date: 20160304
  Serious: Yes (Death, Other)
  Sender: FDA-Public Use
  Company Number: FR-009507513-1511FRA002646

PATIENT
  Age: 87 Year
  Sex: Female

DRUGS (10)
  1. PREVISCAN [Suspect]
     Active Substance: FLUINDIONE
     Dosage: 1/4 ON EVEN DAY AND 1/2 ON ODD DAY
  2. PREDNISOLONE. [Suspect]
     Active Substance: PREDNISOLONE
     Route: 048
  3. FUROSEMIDE. [Suspect]
     Active Substance: FUROSEMIDE
  4. TOPALGIC (TRAMADOL HYDROCHLORIDE) [Suspect]
     Active Substance: TRAMADOL
  5. POLYETHYLENE GLYCOL 3350. [Suspect]
     Active Substance: POLYETHYLENE GLYCOL 3350
     Indication: PRODUCT USED FOR UNKNOWN INDICATION
     Dosage: UNK
  6. PRAVASTATIN SODIUM. [Suspect]
     Active Substance: PRAVASTATIN SODIUM
  7. ALLOPURINOL. [Suspect]
     Active Substance: ALLOPURINOL
  8. BISOPROLOL FUMARATE. [Suspect]
     Active Substance: BISOPROLOL FUMARATE
  9. ZOLOFT [Suspect]
     Active Substance: SERTRALINE HYDROCHLORIDE
  10. INEXIUM (ESOMEPRAZOLE MAGNESIUM) [Suspect]
     Active Substance: ESOMEPRAZOLE MAGNESIUM

REACTIONS (3)
  - Subdural haematoma [Fatal]
  - Tonic clonic movements [Fatal]
  - Cerebral haemorrhage [Fatal]
